FAERS Safety Report 13066330 (Version 1)
Quarter: 2016Q4

REPORT INFORMATION
  Report Type: Spontaneous
  Country: US (occurrence: US)
  Receive Date: 20161227
  Receipt Date: 20161227
  Transmission Date: 20170207
  Serious: Yes (Life-Threatening, Hospitalization)
  Sender: FDA-Public Use
  Company Number: PHHY2016US175274

PATIENT
  Age: 67 Year
  Sex: Male

DRUGS (10)
  1. CHLORPROMAZINE. [Suspect]
     Active Substance: CHLORPROMAZINE
     Dosage: 400 MG,AT NIGHT
     Route: 048
  2. SULFAMETHOXAZOLE AND TRIMETHOPRIM [Suspect]
     Active Substance: SULFAMETHOXAZOLE\TRIMETHOPRIM
     Indication: URINARY TRACT INFECTION
     Dosage: 800 MG/160 MG TWICE DAILY
     Route: 065
  3. CHLORPROMAZINE. [Suspect]
     Active Substance: CHLORPROMAZINE
     Dosage: 100MG INTRAMUSCULAR EVERY TWO HOURS AS NEEDED
     Route: 030
  4. BENZTROPINE [Concomitant]
     Active Substance: BENZTROPINE
     Indication: PRODUCT USED FOR UNKNOWN INDICATION
     Route: 065
  5. CHLORPROMAZINE. [Suspect]
     Active Substance: CHLORPROMAZINE
     Indication: PSYCHOTIC DISORDER
     Dosage: 500 MG, QD
     Route: 048
  6. SPIRONOLACTONE. [Concomitant]
     Active Substance: SPIRONOLACTONE
     Indication: PRODUCT USED FOR UNKNOWN INDICATION
     Route: 065
  7. LEVOTHYROXINE. [Concomitant]
     Active Substance: LEVOTHYROXINE
     Indication: PRODUCT USED FOR UNKNOWN INDICATION
     Route: 065
  8. PROTONIX [Concomitant]
     Active Substance: PANTOPRAZOLE SODIUM
     Indication: PRODUCT USED FOR UNKNOWN INDICATION
     Route: 065
  9. TAMSULOSIN [Concomitant]
     Active Substance: TAMSULOSIN
     Indication: PRODUCT USED FOR UNKNOWN INDICATION
     Route: 065
  10. LORAZEPAM. [Concomitant]
     Active Substance: LORAZEPAM
     Indication: PRODUCT USED FOR UNKNOWN INDICATION
     Route: 065

REACTIONS (3)
  - Agranulocytosis [Recovering/Resolving]
  - Septic shock [Recovering/Resolving]
  - Sepsis [Recovering/Resolving]
